FAERS Safety Report 25915024 (Version 1)
Quarter: 2025Q4

REPORT INFORMATION
  Report Type: Spontaneous
  Country: US (occurrence: US)
  Receive Date: 20251013
  Receipt Date: 20251013
  Transmission Date: 20260118
  Serious: Yes (Life-Threatening, Hospitalization)
  Sender: ACCORD
  Company Number: US-Accord-507668

PATIENT
  Age: 41 Year
  Sex: Female

DRUGS (4)
  1. FLUOROURACIL [Suspect]
     Active Substance: FLUOROURACIL
     Indication: Adenocarcinoma of colon
     Dosage: 5-FU 400 MG/M2 BOLUS FOLLOWED BY 2,400 MG/M2 INFUSION
  2. OXALIPLATIN [Suspect]
     Active Substance: OXALIPLATIN
     Indication: Adenocarcinoma of colon
     Dosage: OXALIPLATIN 85 MG/M2. SHE WAS PLANNED TO UNDERGO AN INFUSION EVERY 28 DAYS FOR A 6-MONTH COURSE
  3. LEUCOVORIN [Suspect]
     Active Substance: LEUCOVORIN\LEUCOVORIN CALCIUM
     Indication: Adenocarcinoma of colon
     Dosage: LEUCOVORIN 400 MG/M2. SHE WAS PLANNED TO UNDERGO AN INFUSION EVERY 28 DAYS FOR A 6-MONTH COURSE
  4. FLUOROURACIL [Suspect]
     Active Substance: FLUOROURACIL
     Indication: Adenocarcinoma of colon
     Dosage: 5-FU 400 MG/M2 BOLUS FOLLOWED BY 2,400 MG/M2 INFUSION

REACTIONS (3)
  - Acute myocardial infarction [Recovered/Resolved]
  - Arteriospasm coronary [Recovered/Resolved]
  - Ventricular tachycardia [Recovered/Resolved]
